FAERS Safety Report 4295018-6 (Version None)
Quarter: 2004Q1

REPORT INFORMATION
  Report Type: 
  Country: None (occurrence: None)
  Receive Date: 20040212
  Receipt Date: 20040212
  Transmission Date: 20041129
  Serious: Yes (Other)
  Sender: FDA-Public Use
  Company Number: None

PATIENT
  Age: 53 Year
  Sex: Female
  Weight: 100.2449 kg

DRUGS (9)
  1. METFORMIN HCL [Suspect]
     Indication: DIABETES MELLITUS
     Dosage: 500 MG
     Dates: start: 19990501, end: 19990901
  2. AMARYL [Concomitant]
  3. TRICOR [Concomitant]
  4. RANITIDINE [Concomitant]
  5. CENESTIN [Concomitant]
  6. ATENOLOL [Concomitant]
  7. EFFEXOR XR [Concomitant]
  8. ALTACE [Concomitant]
  9. CELEBREX [Concomitant]

REACTIONS (3)
  - NAUSEA [None]
  - PHARMACEUTICAL PRODUCT COMPLAINT [None]
  - VOMITING [None]
